FAERS Safety Report 20783465 (Version 2)
Quarter: 2022Q2

REPORT INFORMATION
  Report Type: Spontaneous
  Country: US (occurrence: US)
  Receive Date: 20220504
  Receipt Date: 20220512
  Transmission Date: 20220720
  Serious: Yes (Other)
  Sender: FDA-Public Use
  Company Number: US-PFIZER INC-202200631381

PATIENT
  Age: 9 Year
  Sex: Male

DRUGS (12)
  1. METHOTREXATE SODIUM [Suspect]
     Active Substance: METHOTREXATE SODIUM
     Indication: Dermatomyositis
     Dosage: UNK
  2. AZATHIOPRINE [Suspect]
     Active Substance: AZATHIOPRINE
     Indication: Dermatomyositis
     Dosage: UNK
  3. CYCLOPHOSPHAMIDE [Suspect]
     Active Substance: CYCLOPHOSPHAMIDE
     Indication: Dermatomyositis
     Dosage: UNK
  4. PREDNISONE [Concomitant]
     Active Substance: PREDNISONE
     Indication: Dermatomyositis
     Dosage: UNK
     Route: 048
  5. METHYLPREDNISOLONE [Concomitant]
     Active Substance: METHYLPREDNISOLONE
     Indication: Dermatomyositis
     Dosage: UNK
  6. HUMAN IMMUNOGLOBULIN G [Concomitant]
     Active Substance: HUMAN IMMUNOGLOBULIN G
     Indication: Dermatomyositis
     Dosage: UNK
     Route: 042
  7. HYDROXYCHLOROQUINE [Concomitant]
     Active Substance: HYDROXYCHLOROQUINE
     Indication: Dermatomyositis
     Dosage: UNK
  8. MYCOPHENOLATE MOFETIL [Concomitant]
     Active Substance: MYCOPHENOLATE MOFETIL
     Indication: Dermatomyositis
     Dosage: UNK
  9. RITUXIMAB [Concomitant]
     Active Substance: RITUXIMAB
     Indication: Dermatomyositis
     Dosage: UNK
  10. TACROLIMUS [Concomitant]
     Active Substance: TACROLIMUS
     Indication: Dermatomyositis
     Dosage: UNK
  11. ETANERCEPT [Concomitant]
     Active Substance: ETANERCEPT
     Indication: Dermatomyositis
     Dosage: UNK
  12. ABATACEPT [Concomitant]
     Active Substance: ABATACEPT
     Indication: Dermatomyositis
     Dosage: UNK

REACTIONS (3)
  - Nodular regenerative hyperplasia [Recovering/Resolving]
  - Portal hypertension [Recovering/Resolving]
  - Off label use [Unknown]
